FAERS Safety Report 6866707-1 (Version None)
Quarter: 2010Q2

REPORT INFORMATION
  Report Type: 
  Country: None (occurrence: None)
  Receive Date: 20100604
  Receipt Date: 20100208
  Transmission Date: 20101027
  Serious: Yes (Hospitalization)
  Sender: FDA-Public Use
  Company Number: SPV1-2009-02499

PATIENT
  Age: 8 Year
  Sex: Female
  Weight: 30.8 kg

DRUGS (3)
  1. DAYTRANA [Suspect]
     Indication: ATTENTION DEFICIT/HYPERACTIVITY DISORDER
     Dosage: 10 MG, 1/XDAY:QD, TRANSDERMAL ; 10 MG, 1X/DAY:QD, TRANSDERMAL ; 10 MG, 1X/DAY:QD, TRANSDERMAL
     Route: 062
     Dates: start: 20081001, end: 20090501
  2. DAYTRANA [Suspect]
     Indication: ATTENTION DEFICIT/HYPERACTIVITY DISORDER
     Dosage: 10 MG, 1/XDAY:QD, TRANSDERMAL ; 10 MG, 1X/DAY:QD, TRANSDERMAL ; 10 MG, 1X/DAY:QD, TRANSDERMAL
     Route: 062
     Dates: start: 20090601, end: 20090601
  3. DAYTRANA [Suspect]
     Indication: ATTENTION DEFICIT/HYPERACTIVITY DISORDER
     Dosage: 10 MG, 1/XDAY:QD, TRANSDERMAL ; 10 MG, 1X/DAY:QD, TRANSDERMAL ; 10 MG, 1X/DAY:QD, TRANSDERMAL
     Route: 062
     Dates: start: 20091101

REACTIONS (4)
  - AGGRESSION [None]
  - DECREASED APPETITE [None]
  - INCORRECT DRUG ADMINISTRATION DURATION [None]
  - WEIGHT DECREASED [None]
